FAERS Safety Report 6866430-3 (Version None)
Quarter: 2010Q3

REPORT INFORMATION
  Report Type: 
  Country: None (occurrence: None)
  Receive Date: 20100722
  Receipt Date: 20100715
  Transmission Date: 20110219
  Serious: Yes (Hospitalization)
  Sender: FDA-Public Use
  Company Number: SE-NOVOPROD-311558

PATIENT
  Age: 63 Year
  Sex: Male

DRUGS (9)
  1. VICTOZA [Suspect]
     Indication: TYPE 2 DIABETES MELLITUS
     Dosage: 1.2 MG, QD
     Dates: start: 20100308, end: 20100522
  2. GLUCOPHAGE [Suspect]
     Indication: TYPE 2 DIABETES MELLITUS
     Dosage: 1 G, TID
     Dates: end: 20100522
  3. ENALAPRIL MALEATE [Suspect]
     Indication: ESSENTIAL HYPERTENSION
     Dosage: 20 MG, QD
     Dates: end: 20100522
  4. LIPITOR [Concomitant]
  5. ZOLPIDEM [Concomitant]
  6. DUROFERON [Concomitant]
  7. TROMBYL [Concomitant]
  8. BEZALIP [Concomitant]
  9. PLAVIX [Concomitant]
     Dosage: 75 MG, QD

REACTIONS (2)
  - HYPERKALAEMIA [None]
  - RENAL FAILURE ACUTE [None]
